FAERS Safety Report 8790046 (Version 2)
Quarter: 2013Q3

REPORT INFORMATION
  Report Type: Report from Study
  Country: JP (occurrence: JP)
  Receive Date: 20120917
  Receipt Date: 20130710
  Transmission Date: 20140515
  Serious: Yes (Hospitalization)
  Sender: FDA-Public Use
  Company Number: JP-VERTEX PHARMACEUTICAL INC.-AE-2012-002911

PATIENT
  Age: 55 Year
  Sex: Female

DRUGS (8)
  1. VX-950 (TELAPREVIR) [Suspect]
     Indication: CHRONIC HEPATITIS C
     Dosage: 2250 MG, QD
     Route: 048
     Dates: start: 20120223, end: 20120225
  2. PEGINTRON [Suspect]
     Indication: CHRONIC HEPATITIS C
     Dosage: 1.5 ?G/KG, QW
     Route: 058
     Dates: start: 20120223
  3. PEGINTRON [Suspect]
     Dosage: 1.5 UNK, UNK
     Route: 058
     Dates: start: 20120308
  4. REBETOL [Suspect]
     Indication: CHRONIC HEPATITIS C
     Dosage: 600 MG, QD
     Route: 048
     Dates: start: 20120223, end: 20120225
  5. REBETOL [Suspect]
     Dosage: 600 UNK, QD
     Route: 048
     Dates: start: 20120315, end: 20120523
  6. REBETOL [Suspect]
     Dosage: 400 MG, QD
     Route: 048
     Dates: start: 20120524
  7. RHYTHMY [Concomitant]
     Dosage: UNK
     Route: 048
     Dates: start: 20120705
  8. ALLEGRA [Concomitant]
     Dosage: 120 MG, QD
     Route: 048

REACTIONS (2)
  - Erythema [Recovered/Resolved]
  - Pruritus [Recovered/Resolved]
